FAERS Safety Report 13455410 (Version 3)
Quarter: 2017Q2

REPORT INFORMATION
  Report Type: Report from Study
  Country: US (occurrence: US)
  Receive Date: 20170418
  Receipt Date: 20170620
  Transmission Date: 20170830
  Serious: Yes (Hospitalization)
  Sender: FDA-Public Use
  Company Number: US-VERTEX PHARMACEUTICALS-2017-002070

PATIENT
  Age: 8 Year
  Sex: Male
  Weight: 24 kg

DRUGS (22)
  1. PULMOZYME [Concomitant]
     Active Substance: DORNASE ALFA
     Dosage: ONE VIAL (2.5 MG), QD
     Route: 055
  2. PRILOSEC [Concomitant]
     Active Substance: OMEPRAZOLE MAGNESIUM
     Dosage: 10 MG, QD
     Route: 048
  3. PEG [Concomitant]
     Active Substance: POLYETHYLENE GLYCOLS
     Indication: ABDOMINAL PAIN
     Dosage: 2 1/2 TSP MIXED WITH 8 OZ OF JUICE OR WATER, BID
  4. ENSURE [Concomitant]
     Active Substance: AMINO ACIDS\DEXTROSE\ELECTROLYTES NOS\SOYBEAN OIL\VITAMINS
     Dosage: 3 CANS, QD
     Route: 048
  5. ORKAMBI [Suspect]
     Active Substance: IVACAFTOR\LUMACAFTOR
     Indication: CYSTIC FIBROSIS
     Dosage: UNK
     Route: 048
     Dates: start: 20161102
  6. PROAIR HFA [Concomitant]
     Active Substance: ALBUTEROL SULFATE
     Indication: COUGH
     Dosage: 2-4 PUFFS PRIOR TO AIRWAY CLEARANCE AND EVERY 4-6 HOURS
     Route: 055
  7. HYPERSAL [Concomitant]
     Dosage: 4 ML, BID
  8. ALBUTEROL SULFATE. [Concomitant]
     Active Substance: ALBUTEROL SULFATE
     Indication: WHEEZING
  9. PERTZYE [Concomitant]
     Active Substance: PANCRELIPASE AMYLASE\PANCRELIPASE LIPASE\PANCRELIPASE PROTEASE
     Dosage: 3 CAPSULES BEFORE EACH MEAL/ AND 2 WITH SNACK
  10. BENTYL [Concomitant]
     Active Substance: DICYCLOMINE HYDROCHLORIDE
     Dosage: 1 DF, QID
     Route: 048
  11. PROAIR HFA [Concomitant]
     Active Substance: ALBUTEROL SULFATE
     Indication: WHEEZING
  12. CONSTULOSE [Concomitant]
     Active Substance: LACTULOSE
     Dosage: 15 ML, BID
     Route: 048
  13. CYPROHEPTADINE HCL [Concomitant]
     Active Substance: CYPROHEPTADINE HYDROCHLORIDE
     Dosage: 1/2 TABLET , TID
     Route: 048
  14. ADEKS [Concomitant]
  15. IPRATROPIUM BROMIDE W/XOPENEX [Concomitant]
     Dosage: UNK, QD
  16. CIPRO [Concomitant]
     Active Substance: CIPROFLOXACIN HYDROCHLORIDE
     Indication: BACTERIAL DISEASE CARRIER
  17. TOBI [Concomitant]
     Active Substance: TOBRAMYCIN
     Indication: BACTERIAL DISEASE CARRIER
  18. DEKAS [Concomitant]
     Dosage: 1 DF, QD
     Route: 048
  19. FLUTICASONE PROPIONATE. [Concomitant]
     Active Substance: FLUTICASONE PROPIONATE
     Dosage: 1 SPRAY EACH NOSTRIL, BID
     Route: 045
  20. ALBUTEROL SULFATE. [Concomitant]
     Active Substance: ALBUTEROL SULFATE
     Indication: COUGH
     Dosage: 1-2 VIALS IN NEBULIZER EVERY 4 HOURS, PRN
     Route: 055
  21. CREON [Concomitant]
     Active Substance: PANCRELIPASE AMYLASE\PANCRELIPASE LIPASE\PANCRELIPASE PROTEASE
  22. MELATONIN [Concomitant]
     Active Substance: MELATONIN
     Dosage: 1 DF, QD, AT NIGHT PRN

REACTIONS (3)
  - Viral rash [Recovered/Resolved]
  - Hospitalisation [Unknown]
  - Viral upper respiratory tract infection [Recovered/Resolved]

NARRATIVE: CASE EVENT DATE: 201612
